FAERS Safety Report 8493517-4 (Version None)
Quarter: 2012Q2

REPORT INFORMATION
  Report Type: 
  Country: None (occurrence: None)
  Receive Date: 20120402
  Receipt Date: 20081223
  Transmission Date: 20120825
  Serious: Yes (Other)
  Sender: FDA-Public Use
  Company Number: PHEH2008US09235

PATIENT
  Age: 55 Year
  Sex: Female
  Weight: 54.4 kg

DRUGS (5)
  1. EXFORGE [Suspect]
     Indication: HYPERTENSION
     Dosage: AMLO/320VAL,  ORAL
     Route: 048
     Dates: start: 20080508, end: 20081021
  2. COREG [Concomitant]
  3. LOVASTATIN [Concomitant]
  4. ASPIRIN [Concomitant]
  5. ACETAMINOPHEN [Suspect]
     Indication: ARTHRITIS

REACTIONS (3)
  - OEDEMA PERIPHERAL [None]
  - LIGAMENT SPRAIN [None]
  - ARTHRITIS [None]
